FAERS Safety Report 8695685 (Version 2)
Quarter: 2012Q4

REPORT INFORMATION
  Report Type: 
  Country: CA (occurrence: CA)
  Receive Date: 20120731
  Receipt Date: 20121018
  Transmission Date: 20130627
  Serious: Yes (Death, Hospitalization, Disabling, Other)
  Sender: FDA-Public Use
  Company Number: CA-CELGENEUS-028-20785-12072225

PATIENT
  Age: 71 Year
  Sex: Male

DRUGS (6)
  1. THALOMID [Suspect]
     Indication: MYELOMA
     Dosage: 50 Milligram
     Route: 048
     Dates: start: 20120626, end: 20120723
  2. OXAZEPAM [Concomitant]
     Indication: SLEEP DISTURBANCE
     Dosage: 15 Milligram
     Route: 065
     Dates: start: 2011
  3. CARVEDILOL [Concomitant]
     Indication: CARDIOMYOPATHY
     Dosage: 75 Milligram
     Route: 065
     Dates: start: 20120412
  4. ATORVASTATIN [Concomitant]
     Indication: CHOLESTEROL
     Dosage: 40 Milligram
     Route: 065
     Dates: start: 2011
  5. RABEPRAZOLE [Concomitant]
     Indication: GASTROESOPHAGEAL REFLUX
     Dosage: 20 Milligram
     Route: 065
     Dates: start: 201201
  6. TRAMADOL [Concomitant]
     Indication: PAIN
     Dosage: 300 Milligram
     Route: 065
     Dates: start: 201201

REACTIONS (5)
  - Renal failure [Fatal]
  - Plasma cell myeloma recurrent [Fatal]
  - Dehydration [Recovering/Resolving]
  - Fatigue [Recovering/Resolving]
  - Diarrhoea [Unknown]
